FAERS Safety Report 10916637 (Version 1)
Quarter: 2015Q1

REPORT INFORMATION
  Report Type: Spontaneous
  Country: TR (occurrence: TR)
  Receive Date: 20150316
  Receipt Date: 20150316
  Transmission Date: 20150721
  Serious: Yes (Hospitalization, Other)
  Sender: FDA-Public Use
  Company Number: TR-BAUSCH-BL-2015-009179

PATIENT
  Age: 23 Year
  Sex: Female

DRUGS (1)
  1. WELLBUTRIN XL [Suspect]
     Active Substance: BUPROPION HYDROCHLORIDE
     Indication: INTENTIONAL OVERDOSE
     Dosage: 25-30 TABLETS
     Route: 048

REACTIONS (9)
  - Pneumonia aspiration [Unknown]
  - Toxicity to various agents [Unknown]
  - Generalised tonic-clonic seizure [Recovered/Resolved]
  - Nausea [Unknown]
  - Vomiting [Unknown]
  - Intentional overdose [Unknown]
  - Sinus tachycardia [Recovered/Resolved]
  - Fatigue [Unknown]
  - Lethargy [Unknown]
